FAERS Safety Report 18324923 (Version 4)
Quarter: 2020Q4

REPORT INFORMATION
  Report Type: Report from Study
  Country: US (occurrence: US)
  Receive Date: 20200929
  Receipt Date: 20201229
  Transmission Date: 20210113
  Serious: No
  Sender: FDA-Public Use
  Company Number: NVSC2020US263069

PATIENT
  Sex: Male

DRUGS (4)
  1. ENTRESTO [Suspect]
     Active Substance: SACUBITRIL\VALSARTAN
     Dosage: 50 MG, (24/26)MG
     Route: 048
  2. ENTRESTO [Suspect]
     Active Substance: SACUBITRIL\VALSARTAN
     Indication: PRODUCT USED FOR UNKNOWN INDICATION
     Dosage: 50 MG, BID(24/26)
     Route: 048
  3. AMIODARONE [Concomitant]
     Active Substance: AMIODARONE
     Indication: PRODUCT USED FOR UNKNOWN INDICATION
     Dosage: UNK
     Route: 065
  4. ENTRESTO [Suspect]
     Active Substance: SACUBITRIL\VALSARTAN
     Dosage: 100 MG, BID(49/51MG)
     Route: 048

REACTIONS (10)
  - Blood pressure abnormal [Recovering/Resolving]
  - Heart rate irregular [Unknown]
  - PO2 abnormal [Unknown]
  - Blood glucose abnormal [Unknown]
  - Blood sodium abnormal [Recovering/Resolving]
  - Blood magnesium [Recovering/Resolving]
  - Gait disturbance [Unknown]
  - Blood potassium abnormal [Recovering/Resolving]
  - Sluggishness [Unknown]
  - Balance disorder [Unknown]
